FAERS Safety Report 14070820 (Version 1)
Quarter: 2017Q4

REPORT INFORMATION
  Report Type: Spontaneous
  Country: FR (occurrence: FR)
  Receive Date: 20171010
  Receipt Date: 20171010
  Transmission Date: 20180321
  Serious: Yes (Hospitalization, Other)
  Sender: FDA-Public Use
  Company Number: FR-PFIZER INC-2868187

PATIENT
  Age: 20 Year
  Sex: Female

DRUGS (5)
  1. DOXORUBICIN HCL [Suspect]
     Active Substance: DOXORUBICIN HYDROCHLORIDE
     Indication: LYMPHOMA
     Dosage: 80 MG, DAY 2
     Route: 042
     Dates: start: 20041201, end: 20041201
  2. METHOTREXATE SODIUM. [Suspect]
     Active Substance: METHOTREXATE SODIUM
     Indication: LYMPHOMA
     Dosage: 40 MG, DAY 3
     Route: 042
     Dates: start: 20041202, end: 20041202
  3. HOLOXAN [Suspect]
     Active Substance: IFOSFAMIDE
     Indication: LYMPHOMA
     Dosage: 2500 MG, DAYS 1-4
     Route: 042
     Dates: start: 20041130, end: 20041203
  4. METHYL-GAG [Suspect]
     Active Substance: MITOGUAZONE
     Indication: LYMPHOMA
     Dosage: 850 MG, DAYS 1-5
     Route: 042
     Dates: start: 20041130, end: 20041203
  5. ETOPOSIDE. [Suspect]
     Active Substance: ETOPOSIDE
     Indication: LYMPHOMA
     Dosage: 250 MG, DAYS 1 TO 3
     Route: 042
     Dates: start: 20041130, end: 20041202

REACTIONS (8)
  - Erythema [Recovered/Resolved]
  - Myoclonus [Recovered/Resolved]
  - Nervous system disorder [Recovered/Resolved]
  - Polyneuropathy [Recovered/Resolved]
  - Encephalopathy [Recovered/Resolved]
  - Paraesthesia [Recovered/Resolved]
  - Panniculitis [Recovered/Resolved]
  - Oedema peripheral [Recovered/Resolved]

NARRATIVE: CASE EVENT DATE: 20041203
